FAERS Safety Report 9123233 (Version 1)
Quarter: 2013Q1

REPORT INFORMATION
  Report Type: Spontaneous
  Country: US (occurrence: US)
  Receive Date: 20130114
  Receipt Date: 20130114
  Transmission Date: 20140127
  Serious: Yes (Other)
  Sender: FDA-Public Use
  Company Number: US-AMGEN-USASP2012077086

PATIENT
  Age: 57 Year
  Sex: Male
  Weight: 118 kg

DRUGS (3)
  1. ENBREL [Suspect]
     Indication: PSORIATIC ARTHROPATHY
     Dosage: 50 MG, WEEKLY
     Route: 058
     Dates: start: 2005
  2. ASPIRIN [Concomitant]
     Dosage: UNK
  3. TOPROL [Concomitant]
     Dosage: UNK

REACTIONS (5)
  - Coronary artery occlusion [Recovered/Resolved]
  - Anxiety [Recovered/Resolved]
  - Insomnia [Not Recovered/Not Resolved]
  - Bronchitis [Not Recovered/Not Resolved]
  - Injection site pain [Recovered/Resolved]
